FAERS Safety Report 19411341 (Version 1)
Quarter: 2021Q2

REPORT INFORMATION
  Report Type: Spontaneous
  Country: US (occurrence: US)
  Receive Date: 20210614
  Receipt Date: 20210614
  Transmission Date: 20210717
  Serious: Yes (Hospitalization)
  Sender: FDA-Public Use
  Company Number: None

PATIENT
  Age: 77 Year
  Sex: Male
  Weight: 85.5 kg

DRUGS (14)
  1. LENVIMA [Suspect]
     Active Substance: LENVATINIB
     Indication: RENAL CANCER
     Route: 048
     Dates: start: 20210601
  2. PANTOPRAZOLE [Concomitant]
     Active Substance: PANTOPRAZOLE
  3. INSULIN GLARGINE [Concomitant]
     Active Substance: INSULIN GLARGINE
  4. ATORVASTATIN [Concomitant]
     Active Substance: ATORVASTATIN
  5. IRON SUCROSE [Concomitant]
     Active Substance: IRON SUCROSE
  6. IMODIUM A?D [Concomitant]
     Active Substance: LOPERAMIDE HYDROCHLORIDE
  7. SUCRALFATE. [Concomitant]
     Active Substance: SUCRALFATE
  8. VITAMIN D3 [Concomitant]
     Active Substance: CHOLECALCIFEROL
  9. INSULIN LISPRO [Concomitant]
     Active Substance: INSULIN LISPRO
  10. ELIQUIS [Concomitant]
     Active Substance: APIXABAN
  11. GABAPENTIN. [Concomitant]
     Active Substance: GABAPENTIN
  12. NORMAL SALINE [Concomitant]
     Active Substance: SODIUM CHLORIDE
  13. FEBUXOSTAT. [Concomitant]
     Active Substance: FEBUXOSTAT
  14. ACETAMINOPHEN. [Concomitant]
     Active Substance: ACETAMINOPHEN

REACTIONS (1)
  - Confusional state [None]

NARRATIVE: CASE EVENT DATE: 20210614
